FAERS Safety Report 23830280 (Version 1)
Quarter: 2024Q2

REPORT INFORMATION
  Report Type: Spontaneous
  Country: FR (occurrence: FR)
  Receive Date: 20240508
  Receipt Date: 20240508
  Transmission Date: 20240716
  Serious: Yes (Hospitalization, Other)
  Sender: FDA-Public Use
  Company Number: FR-AFSSAPS-CN2024000243

PATIENT
  Age: 71 Year
  Sex: Female
  Weight: 47 kg

DRUGS (3)
  1. LETROZOLE [Suspect]
     Active Substance: LETROZOLE
     Indication: Breast cancer
     Dosage: 2.5 MILLIGRAM, ONCE A DAY, 2.5 MG/DAY
     Route: 048
     Dates: start: 20230420
  2. ABEMACICLIB [Suspect]
     Active Substance: ABEMACICLIB
     Indication: Breast cancer
     Dosage: 150 MILLIGRAM, TWO TIMES A DAY, 150 MG EVERY 12 HOURS
     Route: 048
     Dates: start: 20230427, end: 20230607
  3. ABEMACICLIB [Suspect]
     Active Substance: ABEMACICLIB
     Dosage: 100 MILLIGRAM, TWO TIMES A DAY, 100 MG MORNING AND EVENING
     Route: 048
     Dates: start: 20230720, end: 20230906

REACTIONS (3)
  - Cholangitis sclerosing [Not Recovered/Not Resolved]
  - Cholestasis [Not Recovered/Not Resolved]
  - Hepatic cytolysis [Not Recovered/Not Resolved]

NARRATIVE: CASE EVENT DATE: 20231011
